FAERS Safety Report 23333441 (Version 1)
Quarter: 2023Q4

REPORT INFORMATION
  Report Type: Other
  Country: US (occurrence: None)
  Receive Date: 20231222
  Receipt Date: 20231222
  Transmission Date: 20240109
  Serious: Yes (Other)
  Sender: FDA-Public Use
  Company Number: US-ROCHE-3478493

PATIENT
  Age: 44 Year
  Sex: Female

DRUGS (1)
  1. BEVACIZUMAB [Suspect]
     Active Substance: BEVACIZUMAB
     Indication: Maculopathy
     Route: 031

REACTIONS (3)
  - Optic ischaemic neuropathy [Unknown]
  - Off label use [Unknown]
  - Off label use [Unknown]
